FAERS Safety Report 16881807 (Version 2)
Quarter: 2019Q4

REPORT INFORMATION
  Report Type: Spontaneous
  Country: FI (occurrence: FI)
  Receive Date: 20191003
  Receipt Date: 20191115
  Transmission Date: 20200122
  Serious: Yes (Death)
  Sender: FDA-Public Use
  Company Number: FI-ABBVIE-19K-055-2950181-00

PATIENT
  Sex: Female

DRUGS (1)
  1. VENCLYXTO [Suspect]
     Active Substance: VENETOCLAX
     Indication: PRODUCT USED FOR UNKNOWN INDICATION
     Route: 048

REACTIONS (1)
  - Death [Fatal]
